FAERS Safety Report 5327862-8 (Version None)
Quarter: 2007Q2

REPORT INFORMATION
  Report Type: 
  Country: None (occurrence: None)
  Receive Date: 20070514
  Receipt Date: 20070502
  Transmission Date: 20071010
  Serious: Yes (Hospitalization)
  Sender: FDA-Public Use
  Company Number: 2007AL001794

PATIENT
  Age: 67 Year
  Sex: Female

DRUGS (3)
  1. GABAPENTIN [Suspect]
     Indication: ANALGESIC EFFECT
     Dosage: 7200 MG;QD
  2. NAPROXEN [Concomitant]
  3. AMITRIPTYLINE HCL [Concomitant]

REACTIONS (8)
  - AGGRESSION [None]
  - AGITATION [None]
  - DRUG WITHDRAWAL SYNDROME [None]
  - EXOPHTHALMOS [None]
  - HYPERHIDROSIS [None]
  - MOOD ALTERED [None]
  - PALLOR [None]
  - TREMOR [None]
